FAERS Safety Report 6858687-X (Version None)
Quarter: 2010Q3

REPORT INFORMATION
  Report Type: 
  Country: None (occurrence: None)
  Receive Date: 20100719
  Receipt Date: 20080211
  Transmission Date: 20110219
  Serious: No
  Sender: FDA-Public Use
  Company Number: US-PFIZER INC-2008014704

PATIENT
  Sex: Male
  Weight: 84.5 kg

DRUGS (5)
  1. CHANTIX [Suspect]
     Indication: SMOKING CESSATION THERAPY
     Route: 048
     Dates: start: 20080204
  2. PHENYTOIN [Concomitant]
  3. PHENOBARBITAL [Concomitant]
  4. ALEVE (CAPLET) [Concomitant]
  5. COFFEE [Concomitant]

REACTIONS (3)
  - EUPHORIC MOOD [None]
  - MOOD ALTERED [None]
  - OXYGEN CONSUMPTION INCREASED [None]
